FAERS Safety Report 14609727 (Version 1)
Quarter: 2018Q1

REPORT INFORMATION
  Report Type: Spontaneous
  Country: FR (occurrence: FR)
  Receive Date: 20180307
  Receipt Date: 20180307
  Transmission Date: 20180509
  Serious: Yes (Hospitalization, Other)
  Sender: FDA-Public Use
  Company Number: FR-GILEAD-2018-0320534

PATIENT
  Age: 33 Year
  Sex: Female

DRUGS (19)
  1. VIREAD [Suspect]
     Active Substance: TENOFOVIR DISOPROXIL FUMARATE
     Dosage: UNK
     Route: 065
     Dates: start: 20041215, end: 20050721
  2. LEDERFOLINE [Concomitant]
     Active Substance: LEUCOVORIN CALCIUM
     Dosage: UNK
     Dates: start: 20040730
  3. DEXERYL                            /00557601/ [Concomitant]
     Active Substance: GLYCERIN\PARAFFIN
  4. ZINNAT                             /00454602/ [Concomitant]
     Active Substance: CEFUROXIME SODIUM
     Dosage: UNK
     Dates: start: 20061210
  5. TOPLEXIL                           /00111401/ [Concomitant]
     Active Substance: ACETAMINOPHEN\GUAIFENESIN\OXOMEMAZINE\SODIUM BENZOATE
  6. KALETRA [Concomitant]
     Active Substance: LOPINAVIR\RITONAVIR
     Indication: HIV INFECTION
  7. TAVANIC [Concomitant]
     Active Substance: LEVOFLOXACIN
     Dosage: UNK
     Dates: start: 20061221
  8. EPIVIR [Concomitant]
     Active Substance: LAMIVUDINE
     Indication: HIV INFECTION
     Dosage: UNK
     Dates: start: 20040811
  9. REYATAZ [Concomitant]
     Active Substance: ATAZANAVIR SULFATE
     Indication: HIV INFECTION
     Dosage: UNK
     Dates: start: 20040811
  10. VALIUM [Concomitant]
     Active Substance: DIAZEPAM
  11. MALOCIDE                           /00112501/ [Concomitant]
     Active Substance: PYRIMETHAMINE
     Dosage: UNK
     Dates: start: 20040730
  12. NORSET [Concomitant]
     Active Substance: MIRTAZAPINE
  13. VIREAD [Suspect]
     Active Substance: TENOFOVIR DISOPROXIL FUMARATE
     Indication: HIV INFECTION
     Dosage: 1 DF, QD
     Route: 065
     Dates: start: 20040811, end: 20041215
  14. VIREAD [Suspect]
     Active Substance: TENOFOVIR DISOPROXIL FUMARATE
     Dosage: 1 DF, QOD
     Route: 065
     Dates: start: 20051013, end: 20070111
  15. ALDARA [Concomitant]
     Active Substance: IMIQUIMOD
     Dosage: UNK
     Dates: start: 20061221
  16. PENTAMIDINE [Concomitant]
     Active Substance: PENTAMIDINE
     Dosage: UNK
     Dates: start: 20040730
  17. NORVIR [Concomitant]
     Active Substance: RITONAVIR
     Indication: HIV INFECTION
     Dosage: UNK
     Dates: start: 20041215
  18. KETODERM                           /00532501/ [Concomitant]
     Active Substance: KETOCONAZOLE
     Dosage: UNK
     Dates: start: 20040717
  19. POLARAMINE [Concomitant]
     Active Substance: DEXCHLORPHENIRAMINE MALEATE
     Dosage: UNK
     Dates: start: 20061221

REACTIONS (8)
  - Drug resistance [Unknown]
  - Treatment failure [Unknown]
  - Oesophageal candidiasis [Unknown]
  - Depression [Unknown]
  - Off label use [Recovered/Resolved]
  - Genotype drug resistance test positive [Unknown]
  - Lung disorder [Unknown]
  - Alcoholism [Unknown]

NARRATIVE: CASE EVENT DATE: 20060421
